FAERS Safety Report 21664343 (Version 1)
Quarter: 2022Q4

REPORT INFORMATION
  Report Type: Spontaneous
  Country: SE (occurrence: SE)
  Receive Date: 20221130
  Receipt Date: 20221130
  Transmission Date: 20230113
  Serious: Yes (Other)
  Sender: FDA-Public Use
  Company Number: None

PATIENT
  Age: 74 Year
  Sex: Female

DRUGS (1)
  1. IBUPROFEN [Suspect]
     Active Substance: IBUPROFEN
     Indication: Back pain
     Dosage: 1 TABLET IF NECESSARY
     Route: 048
     Dates: end: 20220711

REACTIONS (1)
  - Gastritis erosive [Unknown]

NARRATIVE: CASE EVENT DATE: 20220711
